FAERS Safety Report 9702730 (Version 2)
Quarter: 2013Q4

REPORT INFORMATION
  Report Type: Spontaneous
  Country: DE (occurrence: None)
  Receive Date: 20131120
  Receipt Date: 20131125
  Transmission Date: 20140711
  Serious: Yes (Hospitalization, Disabling)
  Sender: FDA-Public Use
  Company Number: AUR-APL-2013-09730

PATIENT
  Age: 58 Year
  Sex: Female
  Weight: 71 kg

DRUGS (3)
  1. CLOPIDOGREL (CLOPIDOGREL) [Suspect]
     Indication: OPTIC ISCHAEMIC NEUROPATHY
     Dosage: (75 MG, 1 IN 1 D)
     Dates: start: 2010
  2. ASS 100 (ACETYLSALICYLIC ACID) [Concomitant]
  3. TRENTAL (PENTOXIFYLLINE) [Concomitant]

REACTIONS (1)
  - Alveolitis allergic [None]
